FAERS Safety Report 25704448 (Version 2)
Quarter: 2025Q3

REPORT INFORMATION
  Report Type: Spontaneous
  Country: US (occurrence: US)
  Receive Date: 20250820
  Receipt Date: 20250901
  Transmission Date: 20251021
  Serious: Yes (Life-Threatening, Hospitalization)
  Sender: TEVA
  Company Number: US-TEVA-VS-3362694

PATIENT
  Age: 85 Year
  Sex: Male

DRUGS (2)
  1. RANOLAZINE [Suspect]
     Active Substance: RANOLAZINE
     Indication: Angina pectoris
     Route: 065
  2. ISOSORBIDE DINITRATE [Suspect]
     Active Substance: ISOSORBIDE DINITRATE
     Indication: Angina pectoris
     Route: 065

REACTIONS (4)
  - Acute coronary syndrome [Unknown]
  - Myocardial injury [Unknown]
  - Cardiogenic shock [Unknown]
  - Lactic acidosis [Unknown]
